FAERS Safety Report 5030882-4 (Version None)
Quarter: 2006Q2

REPORT INFORMATION
  Report Type: 
  Country: None (occurrence: None)
  Receive Date: 20060619
  Receipt Date: 20060606
  Transmission Date: 20061013
  Serious: Yes (Hospitalization)
  Sender: FDA-Public Use
  Company Number: AE200603006337

PATIENT
  Age: 19 Year
  Sex: Male
  Weight: 80 kg

DRUGS (4)
  1. ZYPREXA [Suspect]
     Indication: SCHIZOPHRENIA
     Dosage: SEE IMAGE
     Route: 048
     Dates: start: 20050117, end: 20051001
  2. ZYPREXA [Suspect]
     Indication: SCHIZOPHRENIA
     Dosage: SEE IMAGE
     Route: 048
     Dates: start: 20040101
  3. ZYPREXA [Suspect]
     Indication: SCHIZOPHRENIA
     Dosage: SEE IMAGE
     Route: 048
     Dates: start: 20041213
  4. FAVERIN (FLUVOXAMINE MALEATE) [Concomitant]

REACTIONS (3)
  - APPENDICECTOMY [None]
  - ORTHOSTATIC HYPOTENSION [None]
  - TREATMENT NONCOMPLIANCE [None]
